FAERS Safety Report 10242071 (Version 1)
Quarter: 2014Q2

REPORT INFORMATION
  Report Type: Spontaneous
  Country: US (occurrence: US)
  Receive Date: 20140617
  Receipt Date: 20140617
  Transmission Date: 20141212
  Serious: No
  Sender: FDA-Public Use
  Company Number: US-PFIZER INC-2014164844

PATIENT
  Age: 63 Year
  Sex: Female

DRUGS (3)
  1. METAXALONE [Suspect]
     Indication: NEURALGIA
     Dosage: 800 MG, TWICE DAILY IF NEEDED, TOOK THE PRODUCT THREE TIMES IN THREE DAYS
     Route: 048
     Dates: start: 20140602, end: 201406
  2. METAXALONE [Suspect]
     Indication: MYALGIA
  3. METAXALONE [Suspect]
     Indication: MUSCULOSKELETAL DISCOMFORT

REACTIONS (1)
  - Drug ineffective [Unknown]
